FAERS Safety Report 19395625 (Version 1)
Quarter: 2021Q2

REPORT INFORMATION
  Report Type: Spontaneous
  Country: ES (occurrence: ES)
  Receive Date: 20210609
  Receipt Date: 20210609
  Transmission Date: 20210717
  Serious: Yes (Other)
  Sender: FDA-Public Use
  Company Number: ES-ALLERGAN-2121557US

PATIENT
  Sex: Female

DRUGS (3)
  1. XYDALBA [Suspect]
     Active Substance: DALBAVANCIN HYDROCHLORIDE
     Indication: OSTEOMYELITIS
     Dosage: ACTUAL: 1500 Q/15DAYS,  2 DOSES
     Route: 041
     Dates: start: 20210507, end: 20210526
  2. COMIRNATY [Suspect]
     Active Substance: TOZINAMERAN
     Dosage: FIRST DOSE
     Route: 030
     Dates: start: 20210430, end: 20210430
  3. COMIRNATY [Suspect]
     Active Substance: TOZINAMERAN
     Indication: COVID-19 IMMUNISATION
     Dosage: SECOND DOSE
     Route: 030
     Dates: start: 20210524, end: 20210524

REACTIONS (4)
  - Aphonia [Recovered/Resolved]
  - Vomiting [Recovered/Resolved]
  - Off label use [Unknown]
  - Urticaria [Recovered/Resolved]

NARRATIVE: CASE EVENT DATE: 20210526
